FAERS Safety Report 7034467-X (Version None)
Quarter: 2010Q4

REPORT INFORMATION
  Report Type: 
  Country: None (occurrence: None)
  Receive Date: 20101008
  Receipt Date: 20100927
  Transmission Date: 20110411
  Serious: Yes (Hospitalization)
  Sender: FDA-Public Use
  Company Number: US-JNJFOC-20100908749

PATIENT
  Sex: Female
  Weight: 65.5 kg

DRUGS (7)
  1. REMICADE [Suspect]
     Indication: INFLAMMATORY BOWEL DISEASE
     Route: 042
  2. REMICADE [Suspect]
     Route: 042
  3. 5-ASA [Concomitant]
     Indication: INFLAMMATORY BOWEL DISEASE
  4. METHOTREXATE [Concomitant]
     Indication: INFLAMMATORY BOWEL DISEASE
  5. FOLIC ACID [Concomitant]
  6. IRON PLUS VITAMINS [Concomitant]
  7. PRILOSEC [Concomitant]

REACTIONS (2)
  - CLOSTRIDIAL INFECTION [None]
  - CRYPTOSPORIDIOSIS INFECTION [None]
